FAERS Safety Report 8796922 (Version 1)
Quarter: 2012Q4

REPORT INFORMATION
  Report Type: 
  Country: IT (occurrence: IT)
  Receive Date: 20120920
  Receipt Date: 20120920
  Transmission Date: 20130627
  Serious: Yes (Hospitalization, Other)
  Sender: FDA-Public Use
  Company Number: PHHY2012IT080655

PATIENT
  Age: 38 Year
  Sex: Female

DRUGS (2)
  1. VOLTFAST [Suspect]
     Indication: PYREXIA
     Dosage: 1 DF
     Dates: start: 20120511, end: 20120512
  2. OKI [Suspect]
     Indication: PYREXIA
     Dosage: 1 DF
     Dates: start: 20120511, end: 20120512

REACTIONS (3)
  - Pain in extremity [Recovering/Resolving]
  - Pruritus [Recovering/Resolving]
  - Rash [Recovering/Resolving]
